FAERS Safety Report 7985388-7 (Version None)
Quarter: 2011Q4

REPORT INFORMATION
  Report Type: 
  Country: None (occurrence: None)
  Receive Date: 20111216
  Receipt Date: 20111209
  Transmission Date: 20120403
  Serious: Yes (Life-Threatening)
  Sender: FDA-Public Use
  Company Number: US-ROCHE-1021240

PATIENT

DRUGS (4)
  1. HERCEPTIN [Suspect]
     Indication: BREAST CANCER
     Dosage: 4MG/KG IV OVER 90 MIN. ON WK 1 FOLLOWED BY 2MG/KG IV OVER 30 MIN FOR 15 WKS.
     Route: 042
     Dates: start: 20111101
  2. PACLITAXEL [Suspect]
     Indication: BREAST CANCER
     Dosage: IV OVER 1 HR Q WK
     Route: 042
     Dates: start: 20111101
  3. LAPATINIB [Suspect]
     Indication: BREAST CANCER
     Route: 048
     Dates: start: 20111101
  4. CIPROFLOXACIN [Concomitant]

REACTIONS (1)
  - HYPOKALAEMIA [None]
